FAERS Safety Report 15997662 (Version 2)
Quarter: 2019Q1

REPORT INFORMATION
  Report Type: Report from Study
  Country: US (occurrence: US)
  Receive Date: 20190222
  Receipt Date: 20190319
  Transmission Date: 20190418
  Serious: Yes (Hospitalization, Other)
  Sender: FDA-Public Use
  Company Number: US-GILEAD-2019-0392239

PATIENT
  Age: 51 Year
  Sex: Female
  Weight: 69.39 kg

DRUGS (3)
  1. LORAZEPAM. [Concomitant]
     Active Substance: LORAZEPAM
  2. AMBRISENTAN [Suspect]
     Active Substance: AMBRISENTAN
     Indication: PRODUCT USED FOR UNKNOWN INDICATION
     Dosage: 5 MG, QD
     Route: 065
  3. SEVELAMER CARBONATE. [Concomitant]
     Active Substance: SEVELAMER CARBONATE

REACTIONS (3)
  - Pneumonia [Unknown]
  - Intentional dose omission [Recovered/Resolved]
  - Hypotension [Unknown]
